FAERS Safety Report 4749876-9 (Version None)
Quarter: 2005Q3

REPORT INFORMATION
  Report Type: 
  Country: None (occurrence: None)
  Receive Date: 20050822
  Receipt Date: 20050812
  Transmission Date: 20060218
  Serious: Yes (Hospitalization)
  Sender: FDA-Public Use
  Company Number: PHBS2005CH11760

PATIENT
  Age: 21 Year
  Sex: Female

DRUGS (4)
  1. VOLTAREN [Suspect]
     Indication: MEDICATION ERROR
     Route: 048
  2. VOLTAREN [Suspect]
     Dosage: 20 TABLETS, ONCE/SINGLE
     Route: 048
     Dates: start: 20050703, end: 20050703
  3. TRITTICO [Suspect]
     Indication: DEPRESSION
     Route: 048
     Dates: start: 20050101
  4. TRITTICO [Suspect]
     Dosage: 15 TABLETS, ONCE/SINGLE
     Route: 048
     Dates: start: 20050703, end: 20050703

REACTIONS (10)
  - DELIRIUM [None]
  - DRUG TOXICITY [None]
  - ELECTROENCEPHALOGRAM ABNORMAL [None]
  - FUMBLING [None]
  - GLASGOW COMA SCALE ABNORMAL [None]
  - HALLUCINATION [None]
  - HALLUCINATION, VISUAL [None]
  - MUSCLE TWITCHING [None]
  - SOMNOLENCE [None]
  - SUICIDE ATTEMPT [None]
